FAERS Safety Report 4629733-9 (Version None)
Quarter: 2005Q2

REPORT INFORMATION
  Report Type: 
  Country: None (occurrence: None)
  Receive Date: 20050407
  Receipt Date: 20050317
  Transmission Date: 20051028
  Serious: Yes (Other)
  Sender: FDA-Public Use
  Company Number: GBS050316803

PATIENT
  Age: 60 Year
  Sex: Male

DRUGS (1)
  1. FLUOXETINE [Suspect]
     Dosage: 20 MG DAY
     Route: 048
     Dates: start: 20040901

REACTIONS (11)
  - ABNORMAL BEHAVIOUR [None]
  - AGGRESSION [None]
  - CEREBROVASCULAR ACCIDENT [None]
  - COMMUNICATION DISORDER [None]
  - DRUG INEFFECTIVE [None]
  - FLUID INTAKE REDUCED [None]
  - MENTAL STATUS CHANGES [None]
  - ORAL INTAKE REDUCED [None]
  - PERSONALITY DISORDER [None]
  - SOCIAL AVOIDANT BEHAVIOUR [None]
  - TREATMENT NONCOMPLIANCE [None]
